FAERS Safety Report 7650022-2 (Version None)
Quarter: 2011Q3

REPORT INFORMATION
  Report Type: 
  Country: None (occurrence: None)
  Receive Date: 20110802
  Receipt Date: 20110719
  Transmission Date: 20111222
  Serious: No
  Sender: FDA-Public Use
  Company Number: US-ELI_LILLY_AND_COMPANY-US201106000665

PATIENT
  Sex: Female
  Weight: 62.585 kg

DRUGS (5)
  1. FORTEO [Suspect]
     Dosage: 20 UG, QD
  2. FORTEO [Suspect]
     Indication: OSTEOPOROSIS
     Dosage: 20 UG, QD
     Route: 065
     Dates: start: 20110401
  3. VITAMIN D [Concomitant]
  4. CALCIUM ACETATE [Concomitant]
  5. SPIRIVA [Concomitant]

REACTIONS (1)
  - LYMPHADENOPATHY [None]
